FAERS Safety Report 15425257 (Version 3)
Quarter: 2018Q4

REPORT INFORMATION
  Report Type: Spontaneous
  Country: CA (occurrence: CA)
  Receive Date: 20180925
  Receipt Date: 20181009
  Transmission Date: 20190204
  Serious: Yes (Other)
  Sender: FDA-Public Use
  Company Number: CA-PFIZER INC-2018381856

PATIENT
  Age: 19 Year
  Sex: Female

DRUGS (3)
  1. DIMENHYDRINATE. [Concomitant]
     Active Substance: DIMENHYDRINATE
     Indication: VOMITING
     Dosage: 50 MG, AS NEEDED (50 MG EVERY 6 HOURS AS REQUIRED)
     Dates: start: 19750813
  2. DILANTIN [Suspect]
     Active Substance: PHENYTOIN
     Indication: SEIZURE
  3. DILANTIN [Suspect]
     Active Substance: PHENYTOIN
     Indication: ASTROCYTOMA
     Dosage: 300 MG, DAILY
     Dates: start: 19750721, end: 19750911

REACTIONS (1)
  - Aplasia pure red cell [Recovered/Resolved]

NARRATIVE: CASE EVENT DATE: 197507
